FAERS Safety Report 15456158 (Version 2)
Quarter: 2018Q4

REPORT INFORMATION
  Report Type: Spontaneous
  Country: US (occurrence: US)
  Receive Date: 20181002
  Receipt Date: 20181127
  Transmission Date: 20190204
  Serious: Yes (Other)
  Sender: FDA-Public Use
  Company Number: US-SA-2018SA031540

PATIENT
  Age: 56 Year
  Sex: Female
  Weight: 64.86 kg

DRUGS (4)
  1. TAXOTERE [Suspect]
     Active Substance: DOCETAXEL
     Dosage: 100 UNK, QOW
     Route: 042
     Dates: start: 20150219, end: 20150219
  2. TAXOTERE [Suspect]
     Active Substance: DOCETAXEL
     Indication: BREAST CANCER
     Dosage: 100 MG, QOW
     Route: 042
     Dates: start: 20141003, end: 20141003
  3. TRIAMTERENE. [Concomitant]
     Active Substance: TRIAMTERENE
     Dosage: UNK
     Dates: start: 2000
  4. PARAPLATIN [Concomitant]
     Active Substance: CARBOPLATIN

REACTIONS (1)
  - Alopecia [Recovering/Resolving]

NARRATIVE: CASE EVENT DATE: 201410
